FAERS Safety Report 9661633 (Version 2)
Quarter: 2013Q4

REPORT INFORMATION
  Report Type: Spontaneous
  Country: US (occurrence: US)
  Receive Date: 20131031
  Receipt Date: 20131031
  Transmission Date: 20140711
  Serious: No
  Sender: FDA-Public Use
  Company Number: US-PURDUE-USA-2010-0054374

PATIENT
  Age: 56 Year
  Sex: Male
  Weight: 79.37 kg

DRUGS (1)
  1. OXYCONTIN (NDA 22-272) [Suspect]
     Indication: BONE PAIN
     Dosage: 40 MG, BID
     Route: 048
     Dates: start: 20100909, end: 201101

REACTIONS (6)
  - Pain [Not Recovered/Not Resolved]
  - Skin ulcer [Recovered/Resolved]
  - Scar [Recovered/Resolved]
  - Vomiting [Recovered/Resolved]
  - Nausea [Recovered/Resolved]
  - Drug effect decreased [Recovered/Resolved]
